FAERS Safety Report 5704577-5 (Version None)
Quarter: 2008Q2

REPORT INFORMATION
  Report Type: 
  Country: None (occurrence: None)
  Receive Date: 20080411
  Receipt Date: 20080411
  Transmission Date: 20081010
  Serious: Yes (Hospitalization)
  Sender: FDA-Public Use
  Company Number: None

PATIENT
  Age: 58 Year
  Sex: Male
  Weight: 71.67 kg

DRUGS (2)
  1. WARFARIN SODIUM [Suspect]
     Indication: DEEP VEIN THROMBOSIS
     Dosage: 5MG EVERY DAY PO
     Route: 048
     Dates: start: 20080222
  2. WARFARIN SODIUM [Suspect]
     Indication: MITRAL VALVE INCOMPETENCE
     Dosage: 5MG EVERY DAY PO
     Route: 048
     Dates: start: 20080222

REACTIONS (9)
  - DYSPEPSIA [None]
  - EROSIVE OESOPHAGITIS [None]
  - FAECES DISCOLOURED [None]
  - FATIGUE [None]
  - INCORRECT DOSE ADMINISTERED [None]
  - INTERNATIONAL NORMALISED RATIO ABNORMAL [None]
  - INTERNATIONAL NORMALISED RATIO INCREASED [None]
  - MELAENA [None]
  - THERAPEUTIC AGENT TOXICITY [None]
